FAERS Safety Report 7497287-8 (Version None)
Quarter: 2011Q2

REPORT INFORMATION
  Report Type: 
  Country: None (occurrence: None)
  Receive Date: 20110523
  Receipt Date: 20110515
  Transmission Date: 20111010
  Serious: Yes (Hospitalization)
  Sender: FDA-Public Use
  Company Number: US-SANOFI-AVENTIS-2011SA031130

PATIENT
  Age: 73 Year
  Sex: Female

DRUGS (2)
  1. ALL OTHER THERAPEUTIC PRODUCTS [Concomitant]
  2. GLIMEPIRIDE [Suspect]
     Route: 048

REACTIONS (1)
  - BRAIN NEOPLASM MALIGNANT [None]
